FAERS Safety Report 6999824-6 (Version None)
Quarter: 2010Q3

REPORT INFORMATION
  Report Type: 
  Country: None (occurrence: None)
  Receive Date: 20100920
  Receipt Date: 20100909
  Transmission Date: 20110219
  Serious: Yes (Other)
  Sender: FDA-Public Use
  Company Number: US-AMGEN-US333118

PATIENT
  Sex: Male
  Weight: 97.6 kg

DRUGS (14)
  1. NPLATE [Suspect]
     Indication: IDIOPATHIC THROMBOCYTOPENIC PURPURA
     Route: 058
     Dates: start: 20081119, end: 20090129
  2. CISPLATIN [Concomitant]
  3. ETOPOSIDE [Concomitant]
  4. BLEOMYCIN SULFATE [Concomitant]
  5. EMEND [Concomitant]
  6. DEXAMETHASONE [Concomitant]
  7. KYTRIL [Concomitant]
  8. NEULASTA [Concomitant]
     Indication: CHEMOTHERAPY
  9. CORTICOSTEROIDS [Concomitant]
     Dates: start: 20081023
  10. CYCLOPHOSPHAMIDE [Concomitant]
     Dates: start: 20081029
  11. CYCLOPHOSPHAMIDE [Concomitant]
     Dates: start: 20081029, end: 20081029
  12. PREDNISONE [Concomitant]
  13. NORVASC [Concomitant]
  14. LISINOPRIL [Concomitant]

REACTIONS (5)
  - ASTHENIA [None]
  - CONSTIPATION [None]
  - DEEP VEIN THROMBOSIS [None]
  - NAUSEA [None]
  - PULMONARY EMBOLISM [None]
